FAERS Safety Report 24815463 (Version 2)
Quarter: 2025Q1

REPORT INFORMATION
  Report Type: Spontaneous
  Country: US (occurrence: US)
  Receive Date: 20250107
  Receipt Date: 20250113
  Transmission Date: 20250408
  Serious: No
  Sender: SANDOZ
  Company Number: US-SANDOZ-SDZ2025US000723

PATIENT
  Age: 78 Year
  Sex: Female

DRUGS (1)
  1. RECLAST [Suspect]
     Active Substance: ZOLEDRONIC ACID
     Indication: Product used for unknown indication
     Route: 065

REACTIONS (5)
  - Musculoskeletal stiffness [Unknown]
  - Muscle spasms [Unknown]
  - Gait disturbance [Unknown]
  - Trigger points [Unknown]
  - Headache [Unknown]

NARRATIVE: CASE EVENT DATE: 20241122
